FAERS Safety Report 14355669 (Version 2)
Quarter: 2018Q1

REPORT INFORMATION
  Report Type: Spontaneous
  Country: US (occurrence: US)
  Receive Date: 20180105
  Receipt Date: 20180105
  Transmission Date: 20180509
  Serious: Yes (Hospitalization)
  Sender: FDA-Public Use
  Company Number: US-STANDARD HOMEOPATHIC COMPANY-2039460

PATIENT
  Age: 74 Year
  Sex: Female

DRUGS (1)
  1. HYLANDS LEG CRAMPS [Suspect]
     Active Substance: HOMEOPATHICS
     Indication: PAIN
     Route: 048
     Dates: start: 20171207, end: 20171221

REACTIONS (4)
  - Swelling [None]
  - Blood pressure increased [None]
  - Heart rate increased [None]
  - Chest pain [None]

NARRATIVE: CASE EVENT DATE: 20171221
